FAERS Safety Report 17014914 (Version 1)
Quarter: 2019Q4

REPORT INFORMATION
  Report Type: Report from Study
  Country: IT (occurrence: IT)
  Receive Date: 20191111
  Receipt Date: 20191111
  Transmission Date: 20200122
  Serious: Yes (Other)
  Sender: FDA-Public Use
  Company Number: IT-TEVA-2019-IT-1135854

PATIENT
  Age: 57 Year
  Sex: Male

DRUGS (1)
  1. PIROXICAM. [Suspect]
     Active Substance: PIROXICAM
     Indication: BACK PAIN
     Dosage: 1 DOSAGE FORMS
     Dates: start: 20191003, end: 20191003

REACTIONS (6)
  - Dyspnoea [Recovered/Resolved]
  - Altered state of consciousness [Recovered/Resolved]
  - Hyperhidrosis [Recovered/Resolved]
  - Erythema [Recovered/Resolved]
  - Pruritus [Recovered/Resolved]
  - Drug hypersensitivity [Recovered/Resolved]

NARRATIVE: CASE EVENT DATE: 20191003
